FAERS Safety Report 15782838 (Version 1)
Quarter: 2018Q4

REPORT INFORMATION
  Report Type: Spontaneous
  Country: US (occurrence: US)
  Receive Date: 20181212
  Receipt Date: 20181212
  Transmission Date: 20190205
  Serious: No
  Sender: FDA-Public Use
  Company Number: None

PATIENT
  Age: 76 Year
  Sex: Female
  Weight: 50.35 kg

DRUGS (1)
  1. METHOTREXATE INJ 50MG/2ML MDV [Suspect]
     Active Substance: METHOTREXATE
     Indication: RHEUMATOID ARTHRITIS
     Dosage: ?          OTHER DOSE:0.5ML;(12.5MG) ONCE WEEKLY ON THE SAME DAY EACH WEEK AS DIRECTED?
     Route: 058
     Dates: start: 201802

REACTIONS (4)
  - Malaise [None]
  - Stomatitis [None]
  - Hypertension [None]
  - Vomiting [None]
